FAERS Safety Report 20939057 (Version 3)
Quarter: 2022Q3

REPORT INFORMATION
  Report Type: Report from Study
  Country: PE (occurrence: PE)
  Receive Date: 20220609
  Receipt Date: 20220927
  Transmission Date: 20221027
  Serious: Yes (Other)
  Sender: FDA-Public Use
  Company Number: PE-SA-SAC20220525001815

PATIENT
  Age: 50 Year
  Sex: Male

DRUGS (2)
  1. AGALSIDASE BETA [Suspect]
     Active Substance: AGALSIDASE BETA
     Indication: Fabry^s disease
     Dosage: 70 MG, QOW
     Route: 042
     Dates: start: 20181231
  2. IRBESARTAN [Concomitant]
     Active Substance: IRBESARTAN
     Indication: Hypertension
     Dosage: 2 DF, QD
     Route: 048

REACTIONS (7)
  - Bradycardia [Recovering/Resolving]
  - Sinus node dysfunction [Recovering/Resolving]
  - Road traffic accident [Recovering/Resolving]
  - Injury [Recovering/Resolving]
  - Asymptomatic COVID-19 [Recovering/Resolving]
  - Chest pain [Recovered/Resolved]
  - Chest discomfort [Recovered/Resolved]

NARRATIVE: CASE EVENT DATE: 20210101
